FAERS Safety Report 4681912-0 (Version None)
Quarter: 2005Q2

REPORT INFORMATION
  Report Type: 
  Country: None (occurrence: None)
  Receive Date: 20050602
  Receipt Date: 20050524
  Transmission Date: 20051028
  Serious: Yes (Hospitalization)
  Sender: FDA-Public Use
  Company Number: 2005079594

PATIENT
  Age: 45 Year
  Sex: Female

DRUGS (3)
  1. UNASYN FOR INJECTION (SULBACTAM, AMPICILLIN) [Suspect]
     Indication: PROPHYLAXIS
     Dosage: 1.5 GRAM (1.5 GRAM, DAILY), INTRAVENOUS
     Route: 042
     Dates: start: 20020701, end: 20020701
  2. NALBUPHINE [Concomitant]
  3. CATAFLAM (DICLOFENAC SODIUM) [Concomitant]

REACTIONS (3)
  - ANAPHYLACTIC REACTION [None]
  - POST PROCEDURAL COMPLICATION [None]
  - TETANY [None]
